FAERS Safety Report 10845777 (Version 1)
Quarter: 2015Q1

REPORT INFORMATION
  Report Type: Spontaneous
  Country: US (occurrence: US)
  Receive Date: 20150220
  Receipt Date: 20150220
  Transmission Date: 20150721
  Serious: Yes (Hospitalization)
  Sender: FDA-Public Use
  Company Number: US-ABBVIE-14P-163-1309341-00

PATIENT
  Sex: Female

DRUGS (1)
  1. HUMIRA [Suspect]
     Active Substance: ADALIMUMAB
     Indication: PRODUCT USED FOR UNKNOWN INDICATION
     Route: 065

REACTIONS (17)
  - Weight decreased [Unknown]
  - Pyrexia [Unknown]
  - Arthralgia [Unknown]
  - Rash generalised [Unknown]
  - Discomfort [Unknown]
  - Malaise [Unknown]
  - Hospitalisation [Unknown]
  - Stress [Unknown]
  - Crohn^s disease [Unknown]
  - Condition aggravated [Unknown]
  - Inflammation [Unknown]
  - Eye irritation [Unknown]
  - Anaemia [Unknown]
  - Walking aid user [Unknown]
  - Pain [Unknown]
  - Syncope [Unknown]
  - Haematochezia [Unknown]
